FAERS Safety Report 6559910-1 (Version None)
Quarter: 2010Q1

REPORT INFORMATION
  Report Type: 
  Country: None (occurrence: None)
  Receive Date: 20100129
  Receipt Date: 20090910
  Transmission Date: 20100710
  Serious: No
  Sender: FDA-Public Use
  Company Number: US-ABBOTT-09P-163-0597142-00

PATIENT
  Sex: Female

DRUGS (4)
  1. HUMIRA [Suspect]
     Indication: CROHN'S DISEASE
     Route: 058
     Dates: start: 20071001
  2. PENTASA [Concomitant]
     Indication: CROHN'S DISEASE
     Dosage: UNKNOWN
     Route: 065
  3. MERCAPTOPURINE [Concomitant]
     Indication: CROHN'S DISEASE
     Dosage: UNKNOWN
     Route: 065
  4. ACIPHEX [Concomitant]
     Indication: GASTROOESOPHAGEAL REFLUX DISEASE
     Dosage: UNKNOWN

REACTIONS (3)
  - CROHN'S DISEASE [None]
  - DRUG DOSE OMISSION [None]
  - INJECTION SITE HAEMATOMA [None]
